FAERS Safety Report 10281598 (Version 1)
Quarter: 2014Q3

REPORT INFORMATION
  Report Type: Spontaneous
  Country: GB (occurrence: GB)
  Receive Date: 20140707
  Receipt Date: 20140707
  Transmission Date: 20150326
  Serious: Yes (Hospitalization, Disabling)
  Sender: FDA-Public Use
  Company Number: GB-TEVA-491560ISR

PATIENT
  Age: 54 Year
  Sex: Female

DRUGS (10)
  1. FLUCLOXACILLIN [Concomitant]
     Active Substance: FLUCLOXACILLIN
  2. MIRTAZAPINE. [Concomitant]
     Active Substance: MIRTAZAPINE
  3. CARBOPLATIN. [Suspect]
     Active Substance: CARBOPLATIN
     Indication: OVARIAN EPITHELIAL CANCER
     Dosage: UNKNOWN GIVEN AS PART OF ICON 8 TRIAL
     Route: 042
     Dates: start: 20140422, end: 20140610
  4. PACLITAXEL. [Suspect]
     Active Substance: PACLITAXEL
     Indication: OVARIAN EPITHELIAL CANCER
     Dosage: UNKNOWN GIVEN AS PART OF ICON 8 TRIAL
     Route: 042
     Dates: start: 20140422, end: 20140610
  5. HEPARIN (STANDARD HEPARIN) [Concomitant]
  6. LANSOPRAZOLE. [Concomitant]
     Active Substance: LANSOPRAZOLE
  7. DOMPERIDONE [Concomitant]
     Active Substance: DOMPERIDONE
  8. PIPERACILLIN AND TAZOBACTAM [Concomitant]
     Active Substance: PIPERACILLIN SODIUM\TAZOBACTAM SODIUM
  9. ATORVASTATIN [Concomitant]
     Active Substance: ATORVASTATIN
  10. DALTEPARIN [Concomitant]
     Active Substance: DALTEPARIN

REACTIONS (2)
  - Hidradenitis [Recovering/Resolving]
  - Pain [Unknown]

NARRATIVE: CASE EVENT DATE: 20140612
